FAERS Safety Report 5320361-9 (Version None)
Quarter: 2007Q2

REPORT INFORMATION
  Report Type: 
  Country: None (occurrence: None)
  Receive Date: 20070509
  Receipt Date: 20070501
  Transmission Date: 20071010
  Serious: Yes (Other)
  Sender: FDA-Public Use
  Company Number: US-JNJFOC-20070400200

PATIENT
  Sex: Male

DRUGS (4)
  1. REMICADE [Suspect]
     Indication: PSORIATIC ARTHROPATHY
     Dosage: INFUSION # 10
     Route: 042
  2. REMICADE [Suspect]
     Indication: RHEUMATOID ARTHRITIS
     Dosage: 9 INFUSIONS ON UNKNOWN DATES
     Route: 042
  3. ARAVA [Concomitant]
     Indication: ARTHRITIS
  4. MOBIC [Concomitant]
     Indication: ARTHRITIS

REACTIONS (4)
  - COLD SWEAT [None]
  - INFUSION RELATED REACTION [None]
  - SYNCOPE VASOVAGAL [None]
  - UNRESPONSIVE TO STIMULI [None]
